FAERS Safety Report 17863152 (Version 4)
Quarter: 2020Q4

REPORT INFORMATION
  Report Type: Spontaneous
  Country: US (occurrence: US)
  Receive Date: 20200604
  Receipt Date: 20201119
  Transmission Date: 20210113
  Serious: Yes (Other)
  Sender: FDA-Public Use
  Company Number: US-GILEAD-2020-0469911

PATIENT
  Age: 62 Year
  Sex: Male
  Weight: 81.63 kg

DRUGS (82)
  1. MILK OF MAGNESIA [Concomitant]
     Active Substance: MAGNESIUM HYDROXIDE
  2. VARDENAFIL [Concomitant]
     Active Substance: VARDENAFIL HYDROCHLORIDE
  3. STAVUDINE. [Concomitant]
     Active Substance: STAVUDINE
  4. AUGMENTIN [Concomitant]
     Active Substance: AMOXICILLIN\CLAVULANATE POTASSIUM
  5. DILAUDID [Concomitant]
     Active Substance: HYDROMORPHONE HYDROCHLORIDE
  6. TRUVADA [Suspect]
     Active Substance: EMTRICITABINE\TENOFOVIR DISOPROXIL FUMARATE
     Dosage: UNK
     Route: 048
     Dates: start: 201509, end: 201702
  7. COMPLERA [Suspect]
     Active Substance: EMTRICITABINE\RILPIVIRINE HYDROCHLORIDE\TENOFOVIR DISOPROXIL FUMARATE
     Indication: HIV INFECTION
     Dosage: UNK
     Route: 048
     Dates: start: 201303, end: 201402
  8. BIKTARVY [Concomitant]
     Active Substance: BICTEGRAVIR SODIUM\EMTRICITABINE\TENOFOVIR ALAFENAMIDE FUMARATE
  9. RANITIDINE. [Concomitant]
     Active Substance: RANITIDINE
  10. EPIVIR [Concomitant]
     Active Substance: LAMIVUDINE
  11. TIVICAY [Concomitant]
     Active Substance: DOLUTEGRAVIR SODIUM
  12. VIRACEPT [Concomitant]
     Active Substance: NELFINAVIR MESYLATE
  13. TIZANIDINE HCL [Concomitant]
     Active Substance: TIZANIDINE HYDROCHLORIDE
  14. DOXYCYCLINE HYCLATE. [Concomitant]
     Active Substance: DOXYCYCLINE HYCLATE
  15. BACLOFEN. [Concomitant]
     Active Substance: BACLOFEN
  16. ONDANSETRON [Concomitant]
     Active Substance: ONDANSETRON
  17. EMTRICITABINE [Concomitant]
     Active Substance: EMTRICITABINE
  18. NICOTINE. [Concomitant]
     Active Substance: NICOTINE
  19. MOTRIN [Concomitant]
     Active Substance: IBUPROFEN
  20. AMOXICILLIN. [Concomitant]
     Active Substance: AMOXICILLIN
  21. ATORVASTATIN CALCIUM. [Concomitant]
     Active Substance: ATORVASTATIN CALCIUM
  22. MICONAZOLE NITRATE. [Concomitant]
     Active Substance: MICONAZOLE NITRATE
  23. TRUVADA [Suspect]
     Active Substance: EMTRICITABINE\TENOFOVIR DISOPROXIL FUMARATE
     Dosage: UNK
     Route: 048
     Dates: start: 201402, end: 201507
  24. OMEPRAZOLE. [Concomitant]
     Active Substance: OMEPRAZOLE
  25. CLOTRIMAZOLE. [Concomitant]
     Active Substance: CLOTRIMAZOLE
  26. GOLYTELY [Concomitant]
     Active Substance: POLYETHYLENE GLYCOL 3350\POTASSIUM CHLORIDE\SODIUM BICARBONATE\SODIUM CHLORIDE\SODIUM SULFATE
  27. CLINDAMYCIN HCL [Concomitant]
     Active Substance: CLINDAMYCIN HYDROCHLORIDE
  28. CEPHALEXIN [CEFALEXIN] [Concomitant]
     Active Substance: CEPHALEXIN
  29. PREDNISOLONE ACETATE. [Concomitant]
     Active Substance: PREDNISOLONE ACETATE
  30. LACTULOSE. [Concomitant]
     Active Substance: LACTULOSE
  31. AZITHROMYCIN ANHYDROUS. [Concomitant]
     Active Substance: AZITHROMYCIN ANHYDROUS
  32. GUAFENSIN [Concomitant]
  33. CLONIDINE HCL [Concomitant]
     Active Substance: CLONIDINE HYDROCHLORIDE
  34. FLUCONAZOLE. [Concomitant]
     Active Substance: FLUCONAZOLE
  35. ATROPINE. [Concomitant]
     Active Substance: ATROPINE
  36. DESCOVY [Concomitant]
     Active Substance: EMTRICITABINE\TENOFOVIR ALAFENAMIDE FUMARATE
  37. TRIAMTERENE + HCTZ [Concomitant]
     Active Substance: HYDROCHLOROTHIAZIDE\TRIAMTERENE
  38. MELOXICAM. [Concomitant]
     Active Substance: MELOXICAM
  39. METHADONE [Concomitant]
     Active Substance: METHADONE HYDROCHLORIDE
  40. LORATADINE. [Concomitant]
     Active Substance: LORATADINE
  41. ACETAMINOPHEN W/OXYCODONE [Concomitant]
     Active Substance: ACETAMINOPHEN\OXYCODONE HYDROCHLORIDE
  42. PRAZOSIN HCL [Concomitant]
     Active Substance: PRAZOSIN HYDROCHLORIDE
  43. PSYLLIUM [PLANTAGO PSYLLIUM] [Concomitant]
     Active Substance: HERBALS\PLANTAGO INDICA WHOLE
  44. GABAPENTIN. [Concomitant]
     Active Substance: GABAPENTIN
  45. CODEINE [Concomitant]
     Active Substance: CODEINE
  46. LEDIPASVIR [Concomitant]
     Active Substance: LEDIPASVIR
  47. SERTRALINE HCL [Concomitant]
     Active Substance: SERTRALINE HYDROCHLORIDE
  48. THIAMINE. [Concomitant]
     Active Substance: THIAMINE
  49. NORCO [Concomitant]
     Active Substance: ACETAMINOPHEN\HYDROCODONE BITARTRATE
  50. TRUVADA [Suspect]
     Active Substance: EMTRICITABINE\TENOFOVIR DISOPROXIL FUMARATE
     Dosage: UNK
     Route: 048
     Dates: start: 201402, end: 201702
  51. DOCUSATE [Concomitant]
     Active Substance: DOCUSATE
  52. TRAZODONE HYDROCHLORIDE. [Concomitant]
     Active Substance: TRAZODONE HYDROCHLORIDE
  53. EFFEXOR [Concomitant]
     Active Substance: VENLAFAXINE HYDROCHLORIDE
  54. NALOXONE HCL [Concomitant]
     Active Substance: NALOXONE HYDROCHLORIDE
  55. NYSTATIN. [Concomitant]
     Active Substance: NYSTATIN
  56. TERAZOSIN HCL [Concomitant]
     Active Substance: TERAZOSIN HYDROCHLORIDE
  57. TERBINAFINE HCL [Concomitant]
     Active Substance: TERBINAFINE HYDROCHLORIDE
  58. ATRIPLA [Suspect]
     Active Substance: EFAVIRENZ\EMTRICITABINE\TENOFOVIR DISOPROXIL FUMARATE
     Indication: HIV INFECTION
     Dosage: UNK
     Route: 048
     Dates: start: 200804, end: 201303
  59. ISENTRESS [Concomitant]
     Active Substance: RALTEGRAVIR POTASSIUM
  60. TRIUMEQ [Concomitant]
     Active Substance: ABACAVIR SULFATE\DOLUTEGRAVIR SODIUM\LAMIVUDINE
  61. DICLOFENAC [Concomitant]
     Active Substance: DICLOFENAC
  62. SENNOSIDES. [Concomitant]
     Active Substance: SENNOSIDES
  63. CAPSAICIN. [Concomitant]
     Active Substance: CAPSAICIN
  64. SILDENAFIL. [Concomitant]
     Active Substance: SILDENAFIL
  65. CIPROFLOXACIN. [Concomitant]
     Active Substance: CIPROFLOXACIN
  66. BISACODYL. [Concomitant]
     Active Substance: BISACODYL
  67. BACITRACIN. [Concomitant]
     Active Substance: BACITRACIN
  68. MORPHINE SULFATE. [Concomitant]
     Active Substance: MORPHINE SULFATE
  69. PROCHLORPERAZINE MALEATE. [Concomitant]
     Active Substance: PROCHLORPERAZINE MALEATE
  70. CYCLOBENZAPRINE HCL [Concomitant]
     Active Substance: CYCLOBENZAPRINE HYDROCHLORIDE
  71. ASPIRIN [ACETYLSALICYLIC ACID] [Concomitant]
     Active Substance: ASPIRIN
  72. PREDNISOLONE. [Concomitant]
     Active Substance: PREDNISOLONE
  73. ZERIT [Concomitant]
     Active Substance: STAVUDINE
  74. IBUPROFEN. [Concomitant]
     Active Substance: IBUPROFEN
  75. MIRALAX [Concomitant]
     Active Substance: POLYETHYLENE GLYCOL 3350
  76. CHLORHEXIDINE GLUCONATE. [Concomitant]
     Active Substance: CHLORHEXIDINE GLUCONATE
  77. FLUNISOLIDE. [Concomitant]
     Active Substance: FLUNISOLIDE
  78. FOLATE [Concomitant]
     Active Substance: FOLATE SODIUM
  79. DIAZEPAM. [Concomitant]
     Active Substance: DIAZEPAM
  80. TRUVADA [Suspect]
     Active Substance: EMTRICITABINE\TENOFOVIR DISOPROXIL FUMARATE
     Indication: HIV INFECTION
     Dosage: UNK
     Route: 048
     Dates: start: 200804, end: 201303
  81. COMPLERA [Suspect]
     Active Substance: EMTRICITABINE\RILPIVIRINE HYDROCHLORIDE\TENOFOVIR DISOPROXIL FUMARATE
     Dosage: UNK
     Route: 048
     Dates: start: 201303, end: 201401
  82. METOPROLOL TARTRATE. [Concomitant]
     Active Substance: METOPROLOL TARTRATE

REACTIONS (6)
  - Ankle fracture [Not Recovered/Not Resolved]
  - Bone density decreased [Unknown]
  - Osteoporosis [Unknown]
  - Emotional distress [Unknown]
  - Tooth loss [Not Recovered/Not Resolved]
  - Pain [Unknown]

NARRATIVE: CASE EVENT DATE: 2016
